FAERS Safety Report 5232533-2 (Version None)
Quarter: 2007Q1

REPORT INFORMATION
  Report Type: 
  Country: None (occurrence: None)
  Receive Date: 20070207
  Receipt Date: 20070205
  Transmission Date: 20070707
  Serious: Yes (Other)
  Sender: FDA-Public Use
  Company Number: US-GLAXOSMITHKLINE-A0638593A

PATIENT
  Age: 40 Year
  Sex: Female

DRUGS (2)
  1. TRIZIVIR [Suspect]
     Dosage: 1500MG PER DAY
     Route: 048
     Dates: start: 20020101
  2. NO CONCURRENT MEDICATIONS [Concomitant]

REACTIONS (1)
  - ABORTION SPONTANEOUS [None]
